FAERS Safety Report 13035512 (Version 8)
Quarter: 2017Q4

REPORT INFORMATION
  Report Type: Report from Study
  Country: US (occurrence: US)
  Receive Date: 20161216
  Receipt Date: 20171005
  Transmission Date: 20180320
  Serious: Yes (Death, Hospitalization, Other)
  Sender: FDA-Public Use
  Company Number: US-ARIAD-2016US007445

PATIENT
  Sex: Male
  Weight: 97 kg

DRUGS (8)
  1. ASA [Concomitant]
     Active Substance: ASPIRIN
     Indication: DEEP VEIN THROMBOSIS
     Dosage: UNK
  2. ICLUSIG [Suspect]
     Active Substance: PONATINIB
     Dosage: 30 MG, QD
     Route: 048
  3. RASBURICASE [Concomitant]
     Active Substance: RASBURICASE
     Indication: HYPERURICAEMIA
     Dosage: UNK
  4. PRILOSEC [Concomitant]
     Active Substance: OMEPRAZOLE MAGNESIUM
     Indication: PROPHYLAXIS
     Dosage: 40 MG, QD (AT MORNINGS)
     Route: 048
  5. ICLUSIG [Suspect]
     Active Substance: PONATINIB
     Indication: CHRONIC MYELOID LEUKAEMIA
     Dosage: 45 MG, QD
     Route: 048
     Dates: start: 20161129
  6. ICLUSIG [Suspect]
     Active Substance: PONATINIB
     Dosage: 30 MG, QD
     Route: 048
     Dates: end: 201707
  7. ALLOPURINOL. [Concomitant]
     Active Substance: ALLOPURINOL
     Indication: HYPERURICAEMIA
     Dosage: 300 MG, QD
     Route: 048
     Dates: start: 201512
  8. ICLUSIG [Suspect]
     Active Substance: PONATINIB
     Dosage: 15 MG, QD
     Route: 048
     Dates: start: 20161208

REACTIONS (21)
  - Ischaemic cardiomyopathy [Fatal]
  - Acute myocardial infarction [Fatal]
  - Fall [Unknown]
  - Coronary artery disease [Fatal]
  - Cardiac arrest [Unknown]
  - Dry mouth [Recovered/Resolved]
  - Muscle spasms [Unknown]
  - Acute kidney injury [Unknown]
  - Blood pressure increased [Unknown]
  - Constipation [Recovered/Resolved]
  - Dizziness [Unknown]
  - Cardiogenic shock [Fatal]
  - Respiratory failure [Unknown]
  - Pain [Unknown]
  - Blood lactate dehydrogenase increased [Recovered/Resolved]
  - Therapeutic response decreased [Unknown]
  - Inability to afford medication [Unknown]
  - Liver function test abnormal [Unknown]
  - Delusion [Unknown]
  - Anxiety [Unknown]
  - Nightmare [Recovered/Resolved]
